FAERS Safety Report 10277208 (Version 1)
Quarter: 2014Q3

REPORT INFORMATION
  Report Type: Spontaneous
  Country: BR (occurrence: BR)
  Receive Date: 20140703
  Receipt Date: 20140703
  Transmission Date: 20150326
  Serious: Yes (Hospitalization)
  Sender: FDA-Public Use
  Company Number: BR-009507513-1407BRA000291

PATIENT
  Age: 57 Year
  Sex: Male
  Weight: 55 kg

DRUGS (6)
  1. VICTRELIS [Suspect]
     Active Substance: BOCEPREVIR
     Indication: HEPATITIS C
     Dosage: 800 MG, TID
     Route: 048
     Dates: start: 20140520, end: 20140627
  2. PEGASYS [Concomitant]
     Active Substance: PEGINTERFERON ALFA-2A
     Indication: HEPATITIS C
     Dosage: 1 DF, QW
     Route: 058
     Dates: start: 20140530, end: 20140627
  3. CILOSTAZOL. [Concomitant]
     Active Substance: CILOSTAZOL
     Indication: DIABETIC NEUROPATHY
     Dosage: UNK
  4. RIBAVIRIN (NON MERCK) [Concomitant]
     Indication: HEPATITIS C
     Dosage: 500 MG, BID
     Route: 048
     Dates: start: 20140530, end: 20140627
  5. GABAPENTIN. [Concomitant]
     Active Substance: GABAPENTIN
     Indication: DIABETIC NEUROPATHY
     Dosage: UNK
  6. THIAMINE [Concomitant]
     Active Substance: THIAMINE
     Indication: DIABETIC NEUROPATHY
     Dosage: 2 DF, QD
     Route: 048

REACTIONS (4)
  - Infection [Recovering/Resolving]
  - Nodule [Unknown]
  - Weight decreased [Recovering/Resolving]
  - Renal impairment [Recovering/Resolving]

NARRATIVE: CASE EVENT DATE: 201405
